FAERS Safety Report 25521129 (Version 1)
Quarter: 2025Q3

REPORT INFORMATION
  Report Type: Spontaneous
  Country: GB (occurrence: GB)
  Receive Date: 20250705
  Receipt Date: 20250705
  Transmission Date: 20251021
  Serious: Yes (Other)
  Sender: AUROBINDO
  Company Number: GB-MLMSERVICE-20250617-PI545951-00232-1

PATIENT
  Age: 71 Year
  Sex: Male

DRUGS (1)
  1. MYCOPHENOLATE MOFETIL [Suspect]
     Active Substance: MYCOPHENOLATE MOFETIL
     Indication: Antisynthetase syndrome
     Route: 065

REACTIONS (3)
  - Tuberculosis [Unknown]
  - Joint tuberculosis [Unknown]
  - Fistula [Unknown]

NARRATIVE: CASE EVENT DATE: 20221101
